FAERS Safety Report 5272027-1 (Version None)
Quarter: 2007Q1

REPORT INFORMATION
  Report Type: 
  Country: None (occurrence: None)
  Receive Date: 20061214
  Receipt Date: 20060619
  Transmission Date: 20070707
  Serious: Yes (Other)
  Sender: FDA-Public Use
  Company Number: 2006027658

PATIENT
  Age: 40 Year
  Sex: Female
  Weight: 204.1187 kg

DRUGS (8)
  1. BEXTRA [Suspect]
     Indication: DRUG USE FOR UNKNOWN INDICATION
     Dosage: (20 MG)
     Dates: start: 20040513
  2. ATIVAN [Concomitant]
  3. PROLIXIN [Concomitant]
  4. RISPERDAL [Concomitant]
  5. ZOLOFT [Concomitant]
  6. LAMICTAL [Concomitant]
  7. COMBIVENT [Concomitant]
  8. ASPIRIN [Concomitant]

REACTIONS (1)
  - DERMATITIS ATOPIC [None]
